FAERS Safety Report 7055184-6 (Version None)
Quarter: 2010Q4

REPORT INFORMATION
  Report Type: 
  Country: None (occurrence: None)
  Receive Date: 20101021
  Receipt Date: 20101014
  Transmission Date: 20110411
  Serious: Yes (Other)
  Sender: FDA-Public Use
  Company Number: US-ASTRAZENECA-2007UW25110

PATIENT
  Age: 45 Year
  Sex: Female
  Weight: 101.6 kg

DRUGS (33)
  1. SEROQUEL [Suspect]
     Indication: DEPRESSION
     Route: 048
     Dates: start: 20000601
  2. SEROQUEL [Suspect]
     Indication: POST-TRAUMATIC STRESS DISORDER
     Route: 048
     Dates: start: 20000601
  3. SEROQUEL [Suspect]
     Indication: ANXIETY
     Route: 048
     Dates: start: 20000601
  4. SEROQUEL [Suspect]
     Indication: SLEEP DISORDER
     Route: 048
     Dates: start: 20000601
  5. SEROQUEL [Suspect]
     Indication: SCHIZOPHRENIA
     Route: 048
     Dates: start: 20000601
  6. SEROQUEL [Suspect]
     Dosage: 25 MG - 150 MG
     Route: 048
     Dates: start: 20001110
  7. SEROQUEL [Suspect]
     Dosage: 25 MG - 150 MG
     Route: 048
     Dates: start: 20001110
  8. SEROQUEL [Suspect]
     Dosage: 25 MG - 150 MG
     Route: 048
     Dates: start: 20001110
  9. SEROQUEL [Suspect]
     Dosage: 25 MG - 150 MG
     Route: 048
     Dates: start: 20001110
  10. SEROQUEL [Suspect]
     Dosage: 25 MG - 150 MG
     Route: 048
     Dates: start: 20001110
  11. SEROQUEL [Suspect]
     Route: 048
     Dates: start: 20000601, end: 20071201
  12. SEROQUEL [Suspect]
     Route: 048
     Dates: start: 20000601, end: 20071201
  13. SEROQUEL [Suspect]
     Route: 048
     Dates: start: 20000601, end: 20071201
  14. SEROQUEL [Suspect]
     Route: 048
     Dates: start: 20000601, end: 20071201
  15. SEROQUEL [Suspect]
     Route: 048
     Dates: start: 20000601, end: 20071201
  16. METFORMIN [Concomitant]
     Indication: GLUCOSE TOLERANCE IMPAIRED
     Route: 065
  17. VICODIN [Concomitant]
     Route: 065
  18. DIAZIDE [Concomitant]
     Route: 065
  19. KLONOPIN [Concomitant]
     Dosage: 1-3 MG
     Route: 048
  20. PROZAC [Concomitant]
     Dosage: 20-30 MG
     Route: 048
     Dates: start: 20060101
  21. SYNTHROID [Concomitant]
     Route: 048
  22. OXYCODONE HCL [Concomitant]
     Route: 065
  23. URSODIOL [Concomitant]
     Route: 048
  24. AVIANE-28 [Concomitant]
     Route: 065
  25. IBUPROFEN [Concomitant]
     Route: 065
  26. LEVOTHYROXINE [Concomitant]
     Route: 065
  27. TRIAMTERENE [Concomitant]
     Route: 065
  28. FUROSEMIDE [Concomitant]
     Route: 065
  29. VESICARE [Concomitant]
     Route: 065
  30. FLAXSEED OIL [Concomitant]
     Route: 065
  31. IMODIUM [Concomitant]
     Route: 065
  32. ABILIFY [Concomitant]
     Route: 065
  33. GEODON [Concomitant]

REACTIONS (7)
  - BLOOD TRIGLYCERIDES INCREASED [None]
  - DIABETIC COMPLICATION [None]
  - JOINT INJURY [None]
  - OBESITY [None]
  - OVARIAN DISORDER [None]
  - TYPE 2 DIABETES MELLITUS [None]
  - VAGINAL HAEMORRHAGE [None]
